FAERS Safety Report 11913193 (Version 1)
Quarter: 2016Q1

REPORT INFORMATION
  Report Type: Spontaneous
  Country: FR (occurrence: FR)
  Receive Date: 20160113
  Receipt Date: 20160113
  Transmission Date: 20160526
  Serious: Yes (Hospitalization)
  Sender: FDA-Public Use
  Company Number: FR-009507513-1601FRA003204

PATIENT
  Age: 74 Year
  Sex: Female
  Weight: 59 kg

DRUGS (12)
  1. ESIDREX [Suspect]
     Active Substance: HYDROCHLOROTHIAZIDE
     Dosage: UNK, PROLONGED TREATED
     Route: 048
  2. APROVEL [Concomitant]
     Active Substance: IRBESARTAN
     Dosage: UNK
  3. UVEDOSE [Concomitant]
     Active Substance: CHOLECALCIFEROL
     Dosage: UNK
  4. TAHOR [Concomitant]
     Active Substance: ATORVASTATIN CALCIUM
     Dosage: UNK
  5. TILCOTIL [Concomitant]
     Active Substance: TENOXICAM
     Dosage: UNK
  6. OROZAMUDOL [Suspect]
     Active Substance: TRAMADOL
     Dosage: UNK
     Route: 048
     Dates: end: 20151215
  7. ZAMUDOL [Suspect]
     Active Substance: TRAMADOL HYDROCHLORIDE
     Dosage: UNK
     Route: 048
  8. INEXIUM (ESOMEPRAZOLE MAGNESIUM) [Concomitant]
     Active Substance: ESOMEPRAZOLE MAGNESIUM
     Dosage: UNK
  9. AERIUS [Suspect]
     Active Substance: DESLORATADINE
     Dosage: UNK
  10. ZOVIRAX [Suspect]
     Active Substance: ACYCLOVIR
     Indication: HERPES ZOSTER
     Dosage: UNK, FOR 1 WEEK
     Route: 048
  11. KARDEGIC [Concomitant]
     Active Substance: ASPIRIN LYSINE
     Dosage: UNK
  12. TENORMIN [Concomitant]
     Active Substance: ATENOLOL
     Dosage: UNK

REACTIONS (3)
  - Cognitive disorder [Recovered/Resolved]
  - Somnolence [Recovered/Resolved]
  - Hyponatraemia [Recovered/Resolved]

NARRATIVE: CASE EVENT DATE: 20151205
